FAERS Safety Report 8412771-8 (Version None)
Quarter: 2012Q2

REPORT INFORMATION
  Report Type: 
  Country: None (occurrence: None)
  Receive Date: 20120323
  Receipt Date: 20110207
  Transmission Date: 20120825
  Serious: Yes (Hospitalization)
  Sender: FDA-Public Use
  Company Number: 163-21880-11021029

PATIENT
  Age: 76 Year
  Sex: Male

DRUGS (10)
  1. BACID (LACTOBACILLUS ACIDOPHILUS) [Concomitant]
  2. EFFEXOR [Concomitant]
  3. PRILOSEC [Concomitant]
  4. ROXICODONE [Concomitant]
  5. PREDNISONE [Concomitant]
  6. FLOMAX [Concomitant]
  7. REVLIMID [Suspect]
     Indication: MYELODYSPLASTIC SYNDROME
     Dosage: 10 MG, 1 IN 1 D, PO
     Route: 048
     Dates: start: 20100923, end: 20101110
  8. VANCOMYCIN [Concomitant]
  9. ATIVAN [Concomitant]
  10. AMBIEN [Concomitant]

REACTIONS (2)
  - PLATELET COUNT DECREASED [None]
  - HAEMOGLOBIN DECREASED [None]
